FAERS Safety Report 25979390 (Version 1)
Quarter: 2025Q4

REPORT INFORMATION
  Report Type: Spontaneous
  Country: CA (occurrence: CA)
  Receive Date: 20251030
  Receipt Date: 20251030
  Transmission Date: 20260118
  Serious: Yes (Hospitalization)
  Sender: CELLTRION
  Company Number: CA-PFIZER INC-PV202500080460

PATIENT

DRUGS (1)
  1. INFLECTRA [Suspect]
     Active Substance: INFLIXIMAB-DYYB
     Indication: Crohn^s disease
     Dosage: 5 MG/KG

REACTIONS (2)
  - Crohn^s disease [Not Recovered/Not Resolved]
  - Drug level below therapeutic [Unknown]

NARRATIVE: CASE EVENT DATE: 20250929
